FAERS Safety Report 25968297 (Version 1)
Quarter: 2025Q4

REPORT INFORMATION
  Report Type: Report from Study
  Country: IN (occurrence: IN)
  Receive Date: 20251028
  Receipt Date: 20251028
  Transmission Date: 20260118
  Serious: Yes (Other)
  Sender: BRISTOL-MYERS SQUIBB COMPANY
  Company Number: IN-BRISTOL-MYERS SQUIBB COMPANY-2025-124516

PATIENT
  Age: 54 Year
  Sex: Male

DRUGS (3)
  1. NIVOLUMAB [Suspect]
     Active Substance: NIVOLUMAB
     Indication: Oesophageal squamous cell carcinoma
     Dosage: 2 WEEKLY
     Route: 042
     Dates: start: 20241116
  2. NIVOLUMAB [Suspect]
     Active Substance: NIVOLUMAB
     Dosage: 2 WEEKLY
     Route: 042
     Dates: start: 20241116
  3. NIVOLUMAB [Suspect]
     Active Substance: NIVOLUMAB
     Route: 042
     Dates: start: 20241116

REACTIONS (3)
  - Spinal disorder [Unknown]
  - Haematemesis [Unknown]
  - Asthenia [Unknown]
